FAERS Safety Report 6661299-4 (Version None)
Quarter: 2010Q1

REPORT INFORMATION
  Report Type: 
  Country: None (occurrence: None)
  Receive Date: 20100331
  Receipt Date: 20100325
  Transmission Date: 20100710
  Serious: Yes (Other)
  Sender: FDA-Public Use
  Company Number: US-SANOFI-AVENTIS-2010SA018043

PATIENT
  Age: 69 Year
  Sex: Female

DRUGS (7)
  1. PLAVIX [Suspect]
     Indication: PALPITATIONS
     Route: 048
     Dates: start: 19900101
  2. PLAVIX [Suspect]
     Route: 048
     Dates: start: 19900101
  3. ANTIHYPERTENSIVES [Concomitant]
  4. CHOLESTEROL [Concomitant]
  5. ASPIRIN [Concomitant]
     Route: 048
  6. ALL OTHER THERAPEUTIC PRODUCTS [Concomitant]
     Indication: ARTHRITIS
  7. ANALGESICS [Concomitant]

REACTIONS (3)
  - BLINDNESS UNILATERAL [None]
  - CAROTID ARTERY OCCLUSION [None]
  - OFF LABEL USE [None]
